FAERS Safety Report 15401127 (Version 1)
Quarter: 2018Q3

REPORT INFORMATION
  Report Type: Spontaneous
  Country: BR (occurrence: BR)
  Receive Date: 20180919
  Receipt Date: 20180919
  Transmission Date: 20181010
  Serious: Yes (Other)
  Sender: FDA-Public Use
  Company Number: BR-009507513-1809BRA005149

PATIENT
  Sex: Female
  Weight: 73 kg

DRUGS (4)
  1. MODURETIC 5?50 [Suspect]
     Active Substance: AMILORIDE HYDROCHLORIDE\HYDROCHLOROTHIAZIDE
     Indication: BLOOD PRESSURE ABNORMAL
     Dosage: 1 TABLET DAILY; STRENGTH: 25/2.5 MG
     Route: 048
  2. METOPROLOL TARTRATE. [Concomitant]
     Active Substance: METOPROLOL TARTRATE
     Indication: CARDIAC DISORDER
     Dosage: 1 TABLET DAILY; STRENGTH: 50 MG
     Route: 048
  3. SINVASCOR [Concomitant]
     Active Substance: SIMVASTATIN
     Indication: BLOOD CHOLESTEROL ABNORMAL
     Dosage: 1 TABLET DAILY; STRENGTH: 40 MG
     Route: 048
  4. LOSARTAN POTASSIUM. [Suspect]
     Active Substance: LOSARTAN POTASSIUM
     Indication: BLOOD PRESSURE ABNORMAL
     Dosage: 2 TABLETS DAILY; STRENGTH: 50 MG
     Route: 048

REACTIONS (3)
  - Poor quality drug administered [Unknown]
  - Product physical issue [Unknown]
  - Anticoagulant therapy [Unknown]
